FAERS Safety Report 11925124 (Version 10)
Quarter: 2016Q4

REPORT INFORMATION
  Report Type: Report from Study
  Country: BR (occurrence: BR)
  Receive Date: 20160118
  Receipt Date: 20161202
  Transmission Date: 20170206
  Serious: Yes (Other)
  Sender: FDA-Public Use
  Company Number: PHHY2015BR165776

PATIENT
  Age: 63 Year
  Sex: Male
  Weight: 62 kg

DRUGS (17)
  1. CLONAZEPAM. [Concomitant]
     Active Substance: CLONAZEPAM
     Indication: IRRITABILITY
     Dosage: 1 DF, QD
     Route: 048
     Dates: start: 2010
  2. NAUSEDRON [Concomitant]
     Active Substance: ONDANSETRON HYDROCHLORIDE
     Indication: PRODUCT USED FOR UNKNOWN INDICATION
     Route: 065
  3. ESCITALOPRAM [Concomitant]
     Active Substance: ESCITALOPRAM OXALATE
     Indication: IRRITABILITY
  4. METHADONE [Concomitant]
     Active Substance: METHADONE HYDROCHLORIDE
     Indication: PAIN
     Dosage: 10 MG, TID
     Route: 048
  5. ESCITALOPRAM [Concomitant]
     Active Substance: ESCITALOPRAM OXALATE
     Indication: DEPRESSION
     Dosage: 1 DF, QD
     Route: 048
     Dates: start: 2014
  6. SANDOSTATIN LAR DEPOT [Suspect]
     Active Substance: OCTREOTIDE ACETATE
     Indication: LUNG NEOPLASM MALIGNANT
     Dosage: 30 MG, QMO (EVERY 28 DAYS, ONCE A MONTH)
     Route: 030
     Dates: start: 20150825
  7. SANDOSTATIN LAR DEPOT [Suspect]
     Active Substance: OCTREOTIDE ACETATE
     Dosage: 20 MG, QMO
     Route: 030
  8. SPIRIVA [Concomitant]
     Active Substance: TIOTROPIUM BROMIDE MONOHYDRATE
     Indication: EMPHYSEMA
     Dosage: 2.5 MG, 2X PER DAY
     Route: 055
     Dates: start: 2010
  9. DIPYRONE [Concomitant]
     Active Substance: DIPYRONE
     Indication: PAIN
     Dosage: 2 DF, QID
     Route: 048
     Dates: start: 201405
  10. RIVOTRIL [Concomitant]
     Active Substance: CLONAZEPAM
     Indication: SLEEP DISORDER
     Dosage: 1 DF, QD
     Route: 048
     Dates: start: 2010
  11. DIPYRON [Concomitant]
     Indication: PAIN
     Dosage: UNK UNK, TID
     Route: 048
     Dates: start: 201608
  12. GALVUS [Suspect]
     Active Substance: VILDAGLIPTIN
     Indication: DIABETES MELLITUS
     Route: 065
  13. ALENIA [Concomitant]
     Active Substance: BUDESONIDE\FORMOTEROL FUMARATE
     Indication: EMPHYSEMA
     Dosage: 12/400MG, TID
     Route: 055
     Dates: start: 2010
  14. ESCITALOPRAM [Concomitant]
     Active Substance: ESCITALOPRAM OXALATE
     Indication: CRYING
  15. CODEINE [Concomitant]
     Active Substance: CODEINE
     Indication: PAIN
     Dosage: 1 DF, Q6H
     Route: 048
     Dates: start: 201405
  16. MORPHINE [Concomitant]
     Active Substance: MORPHINE
     Indication: PAIN
     Route: 065
  17. INSULIN [Concomitant]
     Active Substance: INSULIN NOS
     Indication: PRODUCT USED FOR UNKNOWN INDICATION
     Dosage: 2 DF, UNK
     Route: 065

REACTIONS (46)
  - General physical health deterioration [Unknown]
  - Gait disturbance [Unknown]
  - Malaise [Unknown]
  - Feeling abnormal [Unknown]
  - Sluggishness [Recovering/Resolving]
  - Arthralgia [Recovering/Resolving]
  - Neuritis [Recovering/Resolving]
  - Viral infection [Unknown]
  - Peripheral swelling [Unknown]
  - Weight increased [Unknown]
  - Depression [Not Recovered/Not Resolved]
  - Diabetes mellitus [Recovered/Resolved]
  - Nervousness [Unknown]
  - Lethargy [Unknown]
  - Anxiety [Unknown]
  - Aggression [Unknown]
  - Nausea [Recovered/Resolved]
  - Weight decreased [Recovering/Resolving]
  - Pain [Not Recovered/Not Resolved]
  - Irritability [Recovering/Resolving]
  - Asthenia [Unknown]
  - Neoplasm [Unknown]
  - Glucose tolerance impaired [Recovering/Resolving]
  - Urine analysis abnormal [Unknown]
  - Abnormal faeces [Unknown]
  - Swelling face [Unknown]
  - Decreased appetite [Unknown]
  - Injury [Unknown]
  - Pruritus [Recovered/Resolved]
  - Memory impairment [Not Recovered/Not Resolved]
  - Feeling hot [Unknown]
  - Dysbacteriosis [Unknown]
  - Insomnia [Unknown]
  - Vomiting [Recovered/Resolved]
  - Diet refusal [Unknown]
  - Diarrhoea [Unknown]
  - Back pain [Unknown]
  - Erythema [Recovered/Resolved]
  - Apathy [Recovering/Resolving]
  - Pain in extremity [Recovering/Resolving]
  - Headache [Not Recovered/Not Resolved]
  - Procedural pain [Unknown]
  - Musculoskeletal disorder [Unknown]
  - Crying [Unknown]
  - Thoracic outlet syndrome [Unknown]
  - Intercostal neuralgia [Unknown]

NARRATIVE: CASE EVENT DATE: 201508
